FAERS Safety Report 6248458-X (Version None)
Quarter: 2009Q2

REPORT INFORMATION
  Report Type: 
  Country: None (occurrence: None)
  Receive Date: 20090629
  Receipt Date: 20090619
  Transmission Date: 20091009
  Serious: No
  Sender: FDA-Public Use
  Company Number: US-JNJFOC-20090607350

PATIENT
  Sex: Male

DRUGS (4)
  1. FENTANYL TRANSDERMAL SYSTEM [Suspect]
     Indication: BACK PAIN
     Route: 062
  2. DURAGESIC-100 [Suspect]
     Indication: BACK PAIN
     Route: 062
  3. SIMVASTATIN [Concomitant]
     Indication: BLOOD CHOLESTEROL INCREASED
     Route: 048
  4. ETODOLAC [Concomitant]
     Indication: MUSCLE RELAXANT THERAPY

REACTIONS (3)
  - ANALGESIC DRUG LEVEL DECREASED [None]
  - APPLICATION SITE RASH [None]
  - INAPPROPRIATE SCHEDULE OF DRUG ADMINISTRATION [None]
